FAERS Safety Report 20556815 (Version 1)
Quarter: 2022Q1

REPORT INFORMATION
  Report Type: Spontaneous
  Country: LT (occurrence: LT)
  Receive Date: 20220307
  Receipt Date: 20220307
  Transmission Date: 20220423
  Serious: Yes (Life-Threatening, Hospitalization, Other)
  Sender: FDA-Public Use
  Company Number: None

PATIENT
  Age: 50 Year
  Sex: Male

DRUGS (7)
  1. RAMIPRIL [Suspect]
     Active Substance: RAMIPRIL
     Indication: Ventricular arrhythmia
  2. SPIRONOLACTONE [Suspect]
     Active Substance: SPIRONOLACTONE
     Indication: Ventricular arrhythmia
     Dosage: 25 MG, QD
  3. MELDONIUM [Suspect]
     Active Substance: MELDONIUM
     Indication: Ventricular arrhythmia
     Dosage: 500 MG, QD
  4. WARFARIN [Suspect]
     Active Substance: WARFARIN
     Indication: Ventricular arrhythmia
     Dosage: ACCORDING TO SPA, INR
  5. METOPROLOL [Suspect]
     Active Substance: METOPROLOL
     Indication: Ventricular arrhythmia
     Dosage: 47.5 MG, BID
     Route: 048
  6. AMIODARONE HYDROCHLORIDE [Suspect]
     Active Substance: AMIODARONE HYDROCHLORIDE
     Indication: Ventricular arrhythmia
  7. TORSEMIDE [Suspect]
     Active Substance: TORSEMIDE
     Indication: Ventricular arrhythmia

REACTIONS (7)
  - Chest pain [Recovered/Resolved]
  - Intentional product misuse [Unknown]
  - Dyspnoea [Recovered/Resolved]
  - Dyspnoea exertional [Unknown]
  - Alcohol interaction [Unknown]
  - Treatment noncompliance [Unknown]
  - Off label use [Unknown]
